FAERS Safety Report 8524336-8 (Version None)
Quarter: 2012Q2

REPORT INFORMATION
  Report Type: 
  Country: None (occurrence: None)
  Receive Date: 20120406
  Receipt Date: 20111101
  Transmission Date: 20120825
  Serious: Yes (Hospitalization)
  Sender: FDA-Public Use
  Company Number: US-CYPR-2011-000061

PATIENT
  Sex: Female
  Weight: 71.6683 kg

DRUGS (16)
  1. ASPIRIN [Suspect]
     Indication: CORONARY ARTERY DISEASE
     Dosage: 325 MG QD ORAL, 325 MG QD ORAL, 81 MG QD ORAL
     Route: 048
     Dates: start: 20100420
  2. ASPIRIN [Suspect]
     Indication: CORONARY ARTERY DISEASE
     Dosage: 325 MG QD ORAL, 325 MG QD ORAL, 81 MG QD ORAL
     Route: 048
     Dates: start: 20100328, end: 20100419
  3. ASPIRIN [Suspect]
     Indication: CORONARY ARTERY DISEASE
     Dosage: 325 MG QD ORAL, 325 MG QD ORAL, 81 MG QD ORAL
     Route: 048
     Dates: start: 20091015, end: 20100320
  4. LEVOTHYROXINE SODIUM [Concomitant]
  5. PAROXETINE [Concomitant]
  6. AMLODIPINE [Concomitant]
  7. MULTI-VITAMINS [Concomitant]
  8. COLACE [Concomitant]
  9. NIASPAN [Concomitant]
  10. CRESTOR [Concomitant]
  11. ASCORBIC ACID [Concomitant]
  12. CLOPIDOGREL [Suspect]
     Indication: ANTIPLATELET THERAPY
     Dosage: 75 MG QD ORAL, 75 MG QD ORAL
     Dates: start: 20101025, end: 20111026
  13. VITAMIN D2 [Concomitant]
  14. RANITIDINE [Concomitant]
  15. METOPROLOL SUCCINATE [Concomitant]
  16. CYPHER STENT [Concomitant]

REACTIONS (1)
  - ACUTE MYOCARDIAL INFARCTION [None]
